FAERS Safety Report 5820542-1 (Version None)
Quarter: 2008Q3

REPORT INFORMATION
  Report Type: 
  Country: None (occurrence: None)
  Receive Date: 20080724
  Receipt Date: 20070927
  Transmission Date: 20090109
  Serious: No
  Sender: FDA-Public Use
  Company Number: A0685734A

PATIENT
  Sex: Female

DRUGS (3)
  1. AVANDIA [Suspect]
     Indication: DRUG USE FOR UNKNOWN INDICATION
     Route: 065
  2. ACTOS [Suspect]
     Indication: DRUG USE FOR UNKNOWN INDICATION
     Route: 065
  3. INSULIN [Suspect]
     Indication: DRUG USE FOR UNKNOWN INDICATION
     Route: 042

REACTIONS (2)
  - BURNING SENSATION [None]
  - WEIGHT INCREASED [None]
